FAERS Safety Report 7308793-0 (Version None)
Quarter: 2011Q1

REPORT INFORMATION
  Report Type: 
  Country: None (occurrence: None)
  Receive Date: 20110223
  Receipt Date: 20110216
  Transmission Date: 20110831
  Serious: Yes (Other)
  Sender: FDA-Public Use
  Company Number: PHHY2010US83400

PATIENT
  Sex: Male

DRUGS (5)
  1. CLARITIN [Concomitant]
  2. EXTAVIA [Suspect]
     Indication: MULTIPLE SCLEROSIS
     Dosage: 0.25 MG, QOD
     Route: 058
     Dates: start: 20100301
  3. ULTRAM [Concomitant]
     Dosage: 200 MG, UNK
  4. MULTI-VITAMINS [Concomitant]
  5. VITAMIN D [Concomitant]

REACTIONS (2)
  - POLLAKIURIA [None]
  - SLEEP DISORDER [None]
